FAERS Safety Report 6373296-7 (Version None)
Quarter: 2009Q3

REPORT INFORMATION
  Report Type: 
  Country: None (occurrence: None)
  Receive Date: 20090924
  Receipt Date: 20090407
  Transmission Date: 20100115
  Serious: No
  Sender: FDA-Public Use
  Company Number: US-ASTRAZENECA-2009UW08716

PATIENT
  Sex: Female

DRUGS (2)
  1. SEROQUEL [Suspect]
     Indication: ANXIETY
     Route: 048
  2. SEROQUEL [Suspect]
     Route: 048

REACTIONS (6)
  - ABDOMINAL DISCOMFORT [None]
  - CHILLS [None]
  - PAIN [None]
  - SOMNOLENCE [None]
  - VOMITING [None]
  - WEIGHT INCREASED [None]
